FAERS Safety Report 7152101-5 (Version None)
Quarter: 2010Q4

REPORT INFORMATION
  Report Type: 
  Country: None (occurrence: None)
  Receive Date: 20101213
  Receipt Date: 20101202
  Transmission Date: 20110411
  Serious: Yes (Other)
  Sender: FDA-Public Use
  Company Number: US-BIOGENIDEC-2010BI042434

PATIENT
  Age: 39 Year
  Sex: Female
  Weight: 67 kg

DRUGS (1)
  1. TYSABRI [Suspect]
     Indication: MULTIPLE SCLEROSIS
     Route: 042
     Dates: start: 20080501

REACTIONS (11)
  - ADVERSE DRUG REACTION [None]
  - BRONCHITIS [None]
  - CARDIAC FAILURE CONGESTIVE [None]
  - CONTUSION [None]
  - HEART VALVE INCOMPETENCE [None]
  - LUNG DISORDER [None]
  - NASAL DISCOMFORT [None]
  - PALPITATIONS [None]
  - PERTUSSIS [None]
  - PNEUMONIA [None]
  - SINUSITIS [None]
